FAERS Safety Report 5825073-0 (Version None)
Quarter: 2008Q3

REPORT INFORMATION
  Report Type: 
  Country: None (occurrence: None)
  Receive Date: 20080729
  Receipt Date: 20080728
  Transmission Date: 20090109
  Serious: Yes (Life-Threatening, Hospitalization, Other)
  Sender: FDA-Public Use
  Company Number: DE-BRISTOL-MYERS SQUIBB COMPANY-14279152

PATIENT
  Age: 5 Decade
  Sex: Female

DRUGS (7)
  1. CARBOPLATIN [Suspect]
     Indication: NEOPLASM MALIGNANT
     Route: 042
     Dates: start: 20080702
  2. TOPOTECAN HCL [Suspect]
     Indication: NEOPLASM MALIGNANT
     Route: 042
     Dates: start: 20080630
  3. TORSEMIDE [Concomitant]
     Dates: start: 20060102
  4. BISOPROLOL FUMARATE [Concomitant]
     Dates: start: 20060102
  5. MEDIGOXIN [Concomitant]
     Dates: start: 20060102
  6. SPIRONOLACTONE [Concomitant]
     Dates: start: 20060102
  7. PHENPROCOUMON [Concomitant]
     Dates: start: 20060102

REACTIONS (7)
  - ANAEMIA [None]
  - CARDIAC FAILURE [None]
  - DYSPNOEA [None]
  - GENERAL PHYSICAL HEALTH DETERIORATION [None]
  - RENAL FAILURE [None]
  - TACHYARRHYTHMIA [None]
  - THROMBOCYTOPENIA [None]
